FAERS Safety Report 16343210 (Version 1)
Quarter: 2019Q3

REPORT INFORMATION
  Report Type: Spontaneous
  Country: US (occurrence: US)
  Receive Date: 20190521
  Receipt Date: 20190521
  Transmission Date: 20191004
  Serious: Yes (Life-Threatening, Disabling)
  Sender: FDA-Public Use
  Company Number: None

PATIENT
  Age: 31 Year
  Sex: Male

DRUGS (4)
  1. BENADRYL [Suspect]
     Active Substance: DIPHENHYDRAMINE HYDROCHLORIDE
     Indication: FATIGUE
     Dates: start: 20100921, end: 20100927
  2. BENADRYL [Suspect]
     Active Substance: DIPHENHYDRAMINE HYDROCHLORIDE
     Indication: DEPRESSION
     Dates: start: 20100921, end: 20100927
  3. UNSPECIFIED INGREDIENT [Suspect]
     Active Substance: UNSPECIFIED INGREDIENT
  4. BENADRYL [Suspect]
     Active Substance: DIPHENHYDRAMINE HYDROCHLORIDE
     Indication: DEHYDRATION
     Dates: start: 20100921, end: 20100927

REACTIONS (4)
  - Unevaluable event [None]
  - Mental impairment [None]
  - Muscle disorder [None]
  - Arterial disorder [None]

NARRATIVE: CASE EVENT DATE: 20100921
